FAERS Safety Report 8320350-6 (Version None)
Quarter: 2012Q2

REPORT INFORMATION
  Report Type: 
  Country: None (occurrence: None)
  Receive Date: 20120426
  Receipt Date: 20120426
  Transmission Date: 20120825
  Serious: Yes (Disabling)
  Sender: FDA-Public Use
  Company Number: None

PATIENT
  Sex: Female
  Weight: 104.3273 kg

DRUGS (1)
  1. CIPROFLOXACIN HCL [Suspect]

REACTIONS (6)
  - TENDON PAIN [None]
  - BURNING SENSATION [None]
  - GAIT DISTURBANCE [None]
  - SKIN EXFOLIATION [None]
  - HAEMORRHAGE [None]
  - NAIL DISORDER [None]
